FAERS Safety Report 10073264 (Version 1)
Quarter: 2014Q2

REPORT INFORMATION
  Report Type: Spontaneous
  Country: US (occurrence: US)
  Receive Date: 20140411
  Receipt Date: 20140411
  Transmission Date: 20141212
  Serious: Yes (Hospitalization)
  Sender: FDA-Public Use
  Company Number: US-GLAXOSMITHKLINE-A1068971A

PATIENT
  Age: 66 Year
  Sex: Female

DRUGS (2)
  1. WELLBUTRIN [Suspect]
     Indication: PRODUCT USED FOR UNKNOWN INDICATION
     Dosage: 300MG UNKNOWN
     Route: 065
  2. EFFEXOR XR [Suspect]
     Indication: PRODUCT USED FOR UNKNOWN INDICATION
     Dosage: 450MG UNKNOWN
     Route: 065
     Dates: start: 2006

REACTIONS (5)
  - Suicidal ideation [Unknown]
  - Myalgia [Unknown]
  - Bone pain [Unknown]
  - Withdrawal syndrome [Unknown]
  - Visual impairment [Unknown]
